FAERS Safety Report 13598716 (Version 2)
Quarter: 2017Q2

REPORT INFORMATION
  Report Type: Spontaneous
  Country: CH (occurrence: CH)
  Receive Date: 20170531
  Receipt Date: 20170629
  Transmission Date: 20170830
  Serious: Yes (Life-Threatening, Hospitalization, Disabling, Other)
  Sender: FDA-Public Use
  Company Number: CH-PFIZER INC-2015230256

PATIENT
  Age: 54 Year
  Sex: Female
  Weight: 48 kg

DRUGS (3)
  1. METHOTREXATE SODIUM. [Suspect]
     Active Substance: METHOTREXATE SODIUM
     Indication: SPONDYLOARTHROPATHY
     Dosage: 15 MG, WEEKLY
     Route: 058
     Dates: start: 20140106, end: 20150314
  2. ENBREL [Suspect]
     Active Substance: ETANERCEPT
     Indication: ARTHRITIS
     Dosage: 50 MG, WEEKLY
     Route: 058
     Dates: start: 20140918, end: 20150314
  3. LYRICA [Concomitant]
     Active Substance: PREGABALIN
     Dosage: 50 MG, 2X/DAY
     Route: 048
     Dates: start: 20150305, end: 20150307

REACTIONS (16)
  - Retinopathy [Recovered/Resolved]
  - Paralysis [Recovered/Resolved with Sequelae]
  - Meningococcal bacteraemia [Recovered/Resolved]
  - Disseminated intravascular coagulation [Recovered/Resolved]
  - Infection in an immunocompromised host [Recovered/Resolved]
  - Hypersensitivity [Unknown]
  - Stress cardiomyopathy [Recovered/Resolved]
  - Acute kidney injury [Recovered/Resolved]
  - Septic shock [Recovered/Resolved]
  - Immunosuppression [Recovered/Resolved]
  - Pyrexia [Unknown]
  - Skin necrosis [Recovered/Resolved with Sequelae]
  - Vomiting [Unknown]
  - Purpura fulminans [Recovered/Resolved with Sequelae]
  - Transient ischaemic attack [Recovered/Resolved]
  - Pain [Unknown]

NARRATIVE: CASE EVENT DATE: 2015
